FAERS Safety Report 9157507 (Version 1)
Quarter: 2013Q1

REPORT INFORMATION
  Report Type: Spontaneous
  Country: US (occurrence: None)
  Receive Date: 20130311
  Receipt Date: 20130311
  Transmission Date: 20140127
  Serious: No
  Sender: FDA-Public Use
  Company Number: None

PATIENT
  Age: 59 None
  Sex: Female
  Weight: 70.31 kg

DRUGS (1)
  1. BACLOFEN [Suspect]
     Indication: ILL-DEFINED DISORDER
     Route: 048
     Dates: start: 20130213, end: 20130215

REACTIONS (4)
  - Pruritus [None]
  - Local swelling [None]
  - Rash pustular [None]
  - Erythema [None]
